FAERS Safety Report 7879985-7 (Version None)
Quarter: 2011Q4

REPORT INFORMATION
  Report Type: 
  Country: None (occurrence: None)
  Receive Date: 20111101
  Receipt Date: 20111027
  Transmission Date: 20120403
  Serious: Yes (Hospitalization)
  Sender: FDA-Public Use
  Company Number: BR-ROCHE-1007833

PATIENT
  Age: 37 Year
  Sex: Female

DRUGS (1)
  1. MABTHERA [Suspect]
     Indication: LYMPHOMA
     Route: 042

REACTIONS (4)
  - BLINDNESS [None]
  - MYASTHENIA GRAVIS [None]
  - GAIT DISTURBANCE [None]
  - ASTHENIA [None]
